FAERS Safety Report 9133669 (Version 3)
Quarter: 2013Q4

REPORT INFORMATION
  Report Type: Spontaneous
  Country: JP (occurrence: JP)
  Receive Date: 20130302
  Receipt Date: 20131118
  Transmission Date: 20140711
  Serious: Yes (Other)
  Sender: FDA-Public Use
  Company Number: PHHY2013JP019206

PATIENT
  Sex: 0

DRUGS (2)
  1. APRESOLIN [Suspect]
     Route: 064
  2. RITODRINE HYDROCHLORIDE [Concomitant]
     Route: 064

REACTIONS (3)
  - Premature baby [Unknown]
  - Foetal heart rate deceleration abnormality [Unknown]
  - Foetal exposure timing unspecified [Unknown]
